FAERS Safety Report 11939804 (Version 1)
Quarter: 2016Q1

REPORT INFORMATION
  Report Type: Spontaneous
  Country: US (occurrence: US)
  Receive Date: 20160122
  Receipt Date: 20160122
  Transmission Date: 20160526
  Serious: Yes (Other)
  Sender: FDA-Public Use
  Company Number: US-INDIVIOR LIMITED-INDV-087143-2016

PATIENT
  Age: 34 Year
  Sex: Female

DRUGS (7)
  1. PRENATAL VITAMINS                  /07499601/ [Concomitant]
     Active Substance: VITAMINS
     Indication: PRENATAL CARE
     Dosage: UNK, DAILY
     Route: 048
     Dates: start: 2015
  2. NICOTINE. [Concomitant]
     Active Substance: NICOTINE
     Indication: NICOTINE DEPENDENCE
     Dosage: 2 PACKS PER DAY, DAILY
     Route: 055
  3. NICOTINE. [Concomitant]
     Active Substance: NICOTINE
     Dosage: 5-6 CIGARETTES PER DAY
     Route: 055
  4. IRON [Concomitant]
     Active Substance: IRON
     Indication: PRENATAL CARE
     Dosage: UNK, DAILY
     Route: 048
     Dates: start: 2015
  5. BUPRENORPHINE GENERIC TAB [Suspect]
     Active Substance: BUPRENORPHINE
     Indication: DRUG DEPENDENCE
     Dosage: 16 MG, DAILY
     Route: 060
     Dates: start: 2015
  6. SUBOXONE [Suspect]
     Active Substance: BUPRENORPHINE HYDROCHLORIDE\NALOXONE HYDROCHLORIDE
     Indication: DRUG DEPENDENCE
     Dosage: 12 MG, QD, 2-3 MONTHS
     Route: 060
     Dates: start: 20150502, end: 2015
  7. ALCOHOL. [Suspect]
     Active Substance: ALCOHOL
     Indication: PRODUCT USED FOR UNKNOWN INDICATION
     Dosage: UNK
     Route: 065

REACTIONS (5)
  - Alcohol abuse [Unknown]
  - Cystitis [Recovering/Resolving]
  - Kidney infection [Recovered/Resolved]
  - Maternal exposure during pregnancy [Not Recovered/Not Resolved]
  - Vaginal haemorrhage [Recovered/Resolved]

NARRATIVE: CASE EVENT DATE: 2015
